FAERS Safety Report 15953109 (Version 1)
Quarter: 2019Q1

REPORT INFORMATION
  Report Type: Spontaneous
  Country: US (occurrence: US)
  Receive Date: 20190212
  Receipt Date: 20190212
  Transmission Date: 20190417
  Serious: No
  Sender: FDA-Public Use
  Company Number: US-PFIZER INC-2019053478

PATIENT
  Sex: Male

DRUGS (1)
  1. TOVIAZ [Suspect]
     Active Substance: FESOTERODINE FUMARATE
     Dosage: UNK (TOOK 6 PILLS YESTERDAY)
     Dates: start: 201902

REACTIONS (2)
  - Malaise [Unknown]
  - Dry mouth [Unknown]

NARRATIVE: CASE EVENT DATE: 201902
